FAERS Safety Report 8862725 (Version 4)
Quarter: 2013Q4

REPORT INFORMATION
  Report Type: Report from Study
  Country: JP (occurrence: JP)
  Receive Date: 20121026
  Receipt Date: 20131119
  Transmission Date: 20140711
  Serious: Yes (Hospitalization)
  Sender: FDA-Public Use
  Company Number: JP-VERTEX PHARMACEUTICAL INC.-2012-023485

PATIENT
  Age: 59 Year
  Sex: Male

DRUGS (11)
  1. VX-950 (TELAPREVIR) [Suspect]
     Indication: CHRONIC HEPATITIS C
     Dosage: 1500 MG, QD
     Route: 048
     Dates: start: 20120822, end: 20120825
  2. VX-950 (TELAPREVIR) [Suspect]
     Dosage: 1500 MG, QD
     Route: 048
     Dates: start: 20120828, end: 20120912
  3. RIBAVIRIN [Suspect]
     Indication: CHRONIC HEPATITIS C
     Dosage: 800 MG, QD
     Route: 048
     Dates: start: 20120822
  4. PEGINTERFERON ALFA-2B [Suspect]
     Indication: CHRONIC HEPATITIS C
     Dosage: 1.5 ?G/KG, WEEKLY
     Route: 058
     Dates: start: 20120822
  5. OMEPRAL [Concomitant]
     Dosage: 20 MG, QD
     Route: 048
  6. ALESION [Concomitant]
     Dosage: 20 MG, QD
     Route: 048
     Dates: start: 20120822, end: 20120824
  7. ALLEGRA [Concomitant]
     Dosage: 120 MG, QD
     Route: 048
     Dates: start: 20120824
  8. PREDONINE [Concomitant]
     Dosage: 30 MG, QD
     Route: 048
     Dates: start: 20120824, end: 20120912
  9. ALLOZYM [Concomitant]
     Dosage: 200 MG, QD
     Route: 048
  10. CELESTAMINE [Concomitant]
     Dosage: 2 DF, QD/PRN
     Route: 048
     Dates: start: 20121212
  11. ANTEBATE [Concomitant]
     Dosage: UNK, PRN
     Route: 051
     Dates: start: 20120824

REACTIONS (1)
  - Rash [Not Recovered/Not Resolved]
